FAERS Safety Report 19635095 (Version 1)
Quarter: 2021Q3

REPORT INFORMATION
  Report Type: Spontaneous
  Country: US (occurrence: US)
  Receive Date: 20210730
  Receipt Date: 20210730
  Transmission Date: 20211014
  Serious: Yes (Hospitalization, Other)
  Sender: FDA-Public Use
  Company Number: US-VELOXIS PHARMACEUTICALS-2021VELUS-000541

PATIENT
  Age: 51 Year
  Sex: Female

DRUGS (1)
  1. ENVARSUS XR [Suspect]
     Active Substance: TACROLIMUS
     Indication: PRODUCT USED FOR UNKNOWN INDICATION
     Dosage: 8 MILLIGRAM, QD
     Route: 065
     Dates: start: 202104

REACTIONS (5)
  - Diabetic ketoacidosis [Unknown]
  - Loss of consciousness [Unknown]
  - Cystitis [Unknown]
  - Blood magnesium decreased [Unknown]
  - Seizure [Unknown]

NARRATIVE: CASE EVENT DATE: 202107
